FAERS Safety Report 10469621 (Version 2)
Quarter: 2015Q3

REPORT INFORMATION
  Report Type: Spontaneous
  Country: US (occurrence: None)
  Receive Date: 20140905
  Receipt Date: 20150902
  Transmission Date: 20151125
  Serious: Yes (Hospitalization)
  Sender: FDA-Public Use
  Company Number: A-NJ2014-95647

PATIENT
  Age: 46 Year
  Sex: Female

DRUGS (1)
  1. VELETRI [Suspect]
     Active Substance: EPOPROSTENOL
     Indication: COR PULMONALE CHRONIC
     Dosage: 13 NG/KG, PER MIN, INTRAVENOUS
     Route: 042
     Dates: start: 20140116

REACTIONS (8)
  - Transfusion [None]
  - Blood iron decreased [None]
  - Haematocrit decreased [None]
  - Epistaxis [None]
  - Pulmonary arterial hypertension [None]
  - Gastrointestinal haemorrhage [None]
  - Fatigue [None]
  - Haemoglobin decreased [None]

NARRATIVE: CASE EVENT DATE: 20140223
